FAERS Safety Report 9683498 (Version 1)
Quarter: 2013Q4

REPORT INFORMATION
  Report Type: Spontaneous
  Country: US (occurrence: US)
  Receive Date: 20131112
  Receipt Date: 20131112
  Transmission Date: 20140711
  Serious: Yes (Other)
  Sender: FDA-Public Use
  Company Number: US-FRI-1000050823

PATIENT
  Sex: Female

DRUGS (1)
  1. LINZESS [Suspect]
     Dosage: 145MCG
     Route: 048

REACTIONS (2)
  - Hepatic enzyme increased [Recovered/Resolved]
  - Jaundice [Recovered/Resolved]
